FAERS Safety Report 5337065-9 (Version None)
Quarter: 2007Q2

REPORT INFORMATION
  Report Type: 
  Country: None (occurrence: None)
  Receive Date: 20070529
  Receipt Date: 20070516
  Transmission Date: 20071010
  Serious: Yes (Death, Other)
  Sender: FDA-Public Use
  Company Number: US-ELI_LILLY_AND_COMPANY-US200705003622

PATIENT
  Age: 92 Year
  Sex: Female

DRUGS (2)
  1. CYMBALTA [Suspect]
     Indication: DEPRESSION
     Dosage: 40 MG, DAILY (1/D)
     Dates: start: 20070201, end: 20070401
  2. CYMBALTA [Suspect]
     Dosage: 60 MG, UNK
     Dates: start: 20070401

REACTIONS (1)
  - CEREBRAL HAEMORRHAGE [None]
